FAERS Safety Report 17158878 (Version 1)
Quarter: 2019Q4

REPORT INFORMATION
  Report Type: Spontaneous
  Country: IN (occurrence: IN)
  Receive Date: 20191216
  Receipt Date: 20191216
  Transmission Date: 20200122
  Serious: Yes (Other)
  Sender: FDA-Public Use
  Company Number: IN-SEPTODONT-201905640

PATIENT
  Age: 34 Year
  Sex: Female

DRUGS (1)
  1. LIDOCAINE 2 % [Suspect]
     Active Substance: LIDOCAINE
     Indication: DENTAL LOCAL ANAESTHESIA
     Dosage: 2 ML OF LOCAL ANESTHETIC SOLUTION WAS DEPOSITED

REACTIONS (2)
  - Paralysis [Recovered/Resolved]
  - Diplopia [Recovered/Resolved]
